FAERS Safety Report 4593257-8 (Version None)
Quarter: 2005Q1

REPORT INFORMATION
  Report Type: 
  Country: None (occurrence: None)
  Receive Date: 20050224
  Receipt Date: 20040329
  Transmission Date: 20050727
  Serious: No
  Sender: FDA-Public Use
  Company Number: US-BRISTOL-MYERS SQUIBB COMPANY-12547766

PATIENT
  Age: 54 Year
  Sex: Female
  Weight: 95 kg

DRUGS (8)
  1. EXCEDRIN (MIGRAINE) [Suspect]
     Indication: SINUS HEADACHE
     Dosage: 2 TABS 1-3 TIMES DAILY
     Route: 048
  2. LOTENSIN [Concomitant]
  3. PREVACID [Concomitant]
  4. PLAVIX [Concomitant]
  5. SINGULAIR [Concomitant]
  6. VALIUM [Concomitant]
  7. NASONEX [Concomitant]
  8. DARVOCET [Concomitant]

REACTIONS (1)
  - DRUG EFFECT DECREASED [None]
